FAERS Safety Report 6896219-0 (Version None)
Quarter: 2010Q3

REPORT INFORMATION
  Report Type: 
  Country: None (occurrence: None)
  Receive Date: 20100802
  Receipt Date: 20100726
  Transmission Date: 20110219
  Serious: Yes (Congenital Anomaly)
  Sender: FDA-Public Use
  Company Number: A0872581A

PATIENT
  Sex: Female

DRUGS (11)
  1. COMBIVIR [Suspect]
     Indication: HIV INFECTION
     Dates: start: 20050927, end: 20051217
  2. VIDEX [Suspect]
     Indication: HIV INFECTION
     Dates: start: 20050708, end: 20050927
  3. VIRACEPT [Suspect]
     Indication: HIV INFECTION
     Dates: start: 20050927, end: 20051217
  4. BETAMETHASONE [Concomitant]
  5. FERROUS SULFATE [Concomitant]
  6. DEXTROSE [Concomitant]
  7. HYOSCINE HBR HYT [Concomitant]
  8. METOCLOPRAMIDE [Concomitant]
  9. NIFEDIPINE [Concomitant]
  10. PARACETAMOL [Concomitant]
  11. SALBUTAMOL [Concomitant]

REACTIONS (2)
  - ATRIAL SEPTAL DEFECT [None]
  - DRUG EXPOSURE DURING PREGNANCY [None]
